FAERS Safety Report 16928988 (Version 1)
Quarter: 2019Q4

REPORT INFORMATION
  Report Type: Report from Study
  Country: TV (occurrence: TV)
  Receive Date: 20191017
  Receipt Date: 20191017
  Transmission Date: 20200122
  Serious: Yes (Other)
  Sender: FDA-Public Use
  Company Number: TV-ROCHE-2431011

PATIENT
  Age: 84 Year
  Sex: Female

DRUGS (17)
  1. RITUXIMAB. [Suspect]
     Active Substance: RITUXIMAB
     Dosage: AT A DOSE OF 375 MG/M^2 VIA IV INFUSION ON DAY 1 OF CYCLE 1 AND AT A DOSE OF 500 MG/M^2 ON DAY 1 OF
     Route: 041
     Dates: start: 20140704, end: 20141027
  2. AVEENO [Concomitant]
     Active Substance: DIMETHICONE\HOMOSALATE\OCTINOXATE\OCTISALATE\TITANIUM DIOXIDE
     Indication: DRY SKIN
     Route: 065
     Dates: start: 2012
  3. METFORMIN [Concomitant]
     Active Substance: METFORMIN HYDROCHLORIDE
     Indication: TYPE 2 DIABETES MELLITUS
     Route: 065
     Dates: start: 20150925
  4. VENETOCLAX. [Suspect]
     Active Substance: VENETOCLAX
     Route: 048
     Dates: start: 20140509, end: 20140509
  5. RAMIPRIL. [Concomitant]
     Active Substance: RAMIPRIL
     Indication: HYPERTENSION
     Route: 065
     Dates: start: 1980
  6. VENETOCLAX. [Suspect]
     Active Substance: VENETOCLAX
     Route: 048
     Dates: start: 20140514, end: 20140520
  7. VENETOCLAX. [Suspect]
     Active Substance: VENETOCLAX
     Route: 048
     Dates: start: 20140527, end: 20140602
  8. RITUXIMAB. [Suspect]
     Active Substance: RITUXIMAB
     Indication: LYMPHOCYTIC LYMPHOMA
     Dosage: AT A DOSE OF 375 MG/M^2 VIA IV INFUSION ON DAY 1 OF CYCLE 1 AND AT A DOSE OF 500 MG/M^2 ON DAY 1 OF
     Route: 041
     Dates: start: 20140609, end: 20140609
  9. FENOFIBRATE. [Concomitant]
     Active Substance: FENOFIBRATE
     Indication: OSTEOARTHRITIS
     Route: 065
     Dates: start: 1985
  10. TYLENOL ARTHRITIS PAIN [Concomitant]
     Active Substance: ACETAMINOPHEN
     Indication: OSTEOARTHRITIS
     Route: 065
     Dates: start: 201404
  11. VENETOCLAX. [Suspect]
     Active Substance: VENETOCLAX
     Route: 048
     Dates: start: 20151002, end: 20160601
  12. JANUVIA [Concomitant]
     Active Substance: SITAGLIPTIN PHOSPHATE
     Indication: TYPE 2 DIABETES MELLITUS
     Route: 065
     Dates: start: 20150925
  13. VENETOCLAX. [Suspect]
     Active Substance: VENETOCLAX
     Indication: LYMPHOCYTIC LYMPHOMA
     Dosage: INITIAL DOSE OF 20 MG VIA TABLET ORALLY QD, INCREMENTED WEEKLY UP TO A MAXIMUM DOSE OF 400 MG DURING
     Route: 048
     Dates: start: 20140508
  14. VENETOCLAX. [Suspect]
     Active Substance: VENETOCLAX
     Route: 048
     Dates: start: 20140609, end: 20150925
  15. BENDAMUSTINE [Suspect]
     Active Substance: BENDAMUSTINE
     Indication: LYMPHOCYTIC LYMPHOMA
     Dosage: 70 MG/M^2 VIA IV INFUSION ON DAYS 1 AND 2 OF EACH 28-DAY CYCLE, FOR 6 CYCLES.
     Route: 042
  16. VENETOCLAX. [Suspect]
     Active Substance: VENETOCLAX
     Route: 048
     Dates: start: 20140508, end: 20140508
  17. VENETOCLAX. [Suspect]
     Active Substance: VENETOCLAX
     Route: 048
     Dates: start: 20140521, end: 20140526

REACTIONS (1)
  - Squamous cell carcinoma [Recovered/Resolved]

NARRATIVE: CASE EVENT DATE: 20190620
